FAERS Safety Report 5131038-7 (Version None)
Quarter: 2006Q4

REPORT INFORMATION
  Report Type: 
  Country: None (occurrence: None)
  Receive Date: 20061019
  Receipt Date: 20061017
  Transmission Date: 20070319
  Serious: Yes (Hospitalization)
  Sender: FDA-Public Use
  Company Number: US-ROXANE LABORATORIES, INC-2006-BP-12101RO

PATIENT
  Age: 62 Year
  Sex: Female

DRUGS (4)
  1. AZATHIOPRINE [Suspect]
     Indication: DERMATITIS
  2. CORTICOSTEROIDS [Suspect]
     Indication: DERMATITIS
  3. AMPHOTERICIN B [Suspect]
     Indication: CRYPTOCOCCOSIS
  4. 5-FLUCYTOSINE [Suspect]
     Indication: CRYPTOCOCCOSIS

REACTIONS (8)
  - CRYPTOCOCCAL CUTANEOUS INFECTION [None]
  - CRYPTOCOCCOSIS [None]
  - DRUG EFFECT DECREASED [None]
  - PAIN OF SKIN [None]
  - RASH [None]
  - RENAL FAILURE ACUTE [None]
  - SKIN ULCER [None]
  - SUBCUTANEOUS NODULE [None]
